FAERS Safety Report 5015323-5 (Version None)
Quarter: 2006Q2

REPORT INFORMATION
  Report Type: 
  Country: None (occurrence: None)
  Receive Date: 20060530
  Receipt Date: 20060530
  Transmission Date: 20061013
  Serious: Yes (Hospitalization)
  Sender: FDA-Public Use
  Company Number: None

PATIENT
  Age: 79 Year
  Sex: Male
  Weight: 85 kg

DRUGS (2)
  1. MORPHINE [Suspect]
     Indication: FALL
     Dosage: BID PO
     Route: 048
     Dates: start: 20051208, end: 20051210
  2. HYDROCODONE/APAP 7.5/500 MG [Suspect]
     Indication: PAIN
     Dosage: QID PRN PO
     Route: 048
     Dates: start: 20050718

REACTIONS (3)
  - LOSS OF CONSCIOUSNESS [None]
  - MENTAL STATUS CHANGES [None]
  - PNEUMONIA ASPIRATION [None]
